FAERS Safety Report 20652023 (Version 6)
Quarter: 2022Q2

REPORT INFORMATION
  Report Type: Spontaneous
  Country: US (occurrence: US)
  Receive Date: 20220330
  Receipt Date: 20220513
  Transmission Date: 20220721
  Serious: Yes (Other)
  Sender: FDA-Public Use
  Company Number: US-GLAXOSMITHKLINE-US2022053543

PATIENT

DRUGS (3)
  1. ZEJULA [Suspect]
     Active Substance: NIRAPARIB
     Indication: Genital neoplasm malignant female
     Dosage: 200 MG, QD (QPM)
     Route: 048
     Dates: start: 20220315
  2. ZEJULA [Suspect]
     Active Substance: NIRAPARIB
     Dosage: 100 MG, QD
     Route: 048
  3. ZEJULA [Suspect]
     Active Substance: NIRAPARIB
     Dosage: 200 MG, QD
     Route: 048

REACTIONS (13)
  - Malignant neoplasm progression [Unknown]
  - Decreased appetite [Unknown]
  - Fatigue [Not Recovered/Not Resolved]
  - Palpitations [Unknown]
  - Nausea [Unknown]
  - Dizziness [Unknown]
  - Adverse drug reaction [Recovered/Resolved]
  - Feeling abnormal [Recovered/Resolved]
  - Heart rate increased [Unknown]
  - Anxiety [Unknown]
  - Feeling abnormal [Unknown]
  - Carbohydrate antigen 125 increased [Not Recovered/Not Resolved]
  - Drug ineffective [Unknown]
